FAERS Safety Report 16117197 (Version 1)
Quarter: 2019Q2

REPORT INFORMATION
  Report Type: Spontaneous
  Country: US (occurrence: US)
  Receive Date: 20190325
  Receipt Date: 20190325
  Transmission Date: 20190711
  Serious: Yes (Hospitalization)
  Sender: FDA-Public Use
  Company Number: None

PATIENT
  Age: 79 Year
  Sex: Male
  Weight: 84.6 kg

DRUGS (1)
  1. PERIOMED [Suspect]
     Active Substance: STANNOUS FLUORIDE

REACTIONS (4)
  - Dyspnoea [None]
  - Swollen tongue [None]
  - Swelling face [None]
  - Erythema [None]

NARRATIVE: CASE EVENT DATE: 20190222
